FAERS Safety Report 14972890 (Version 1)
Quarter: 2018Q2

REPORT INFORMATION
  Report Type: Spontaneous
  Country: US (occurrence: US)
  Receive Date: 20180605
  Receipt Date: 20180605
  Transmission Date: 20180711
  Serious: No
  Sender: FDA-Public Use
  Company Number: US-AUROBINDO-AUR-APU-2018-014382

PATIENT
  Sex: Female

DRUGS (1)
  1. VENLAFAXINE HYDROCHLORIDE EXTENDED-RELEASE CAPSULES 75MG [Suspect]
     Active Substance: VENLAFAXINE HYDROCHLORIDE
     Indication: DEPRESSION
     Dosage: 01 DOSAGE FORM, DAILY
     Route: 065
     Dates: start: 20171219

REACTIONS (3)
  - Product quality issue [Unknown]
  - Crying [Not Recovered/Not Resolved]
  - Insomnia [Not Recovered/Not Resolved]
